FAERS Safety Report 12957786 (Version 1)
Quarter: 2016Q4

REPORT INFORMATION
  Report Type: Spontaneous
  Country: US (occurrence: US)
  Receive Date: 20161118
  Receipt Date: 20161118
  Transmission Date: 20170207
  Serious: No
  Sender: FDA-Public Use
  Company Number: US-BIOGEN-2016BI00319360

PATIENT
  Sex: Female

DRUGS (1)
  1. ZINBRYTA [Suspect]
     Active Substance: DACLIZUMAB
     Indication: RELAPSING-REMITTING MULTIPLE SCLEROSIS
     Route: 065
     Dates: start: 20160909

REACTIONS (5)
  - Vessel puncture site bruise [Unknown]
  - Vascular access complication [Unknown]
  - Vessel puncture site reaction [Unknown]
  - Panic reaction [Unknown]
  - Vein collapse [Unknown]
